FAERS Safety Report 18684347 (Version 1)
Quarter: 2020Q4

REPORT INFORMATION
  Report Type: Spontaneous
  Country: US (occurrence: US)
  Receive Date: 20201230
  Receipt Date: 20201230
  Transmission Date: 20210114
  Serious: No
  Sender: FDA-Public Use
  Company Number: US-B.I. PHARMACEUTICALS,INC./RIDGEFIELD-2020-BI-071477

PATIENT
  Sex: Female

DRUGS (1)
  1. OFEV [Suspect]
     Active Substance: NINTEDANIB
     Indication: IDIOPATHIC PULMONARY FIBROSIS
     Dosage: UNKNOWN
     Route: 048

REACTIONS (20)
  - Dehydration [Unknown]
  - Hypophagia [Unknown]
  - Diarrhoea [Unknown]
  - Nail discolouration [Unknown]
  - Weight decreased [Unknown]
  - Blood electrolytes decreased [Unknown]
  - Skin hypopigmentation [Unknown]
  - Dysphonia [Unknown]
  - Chest pain [Unknown]
  - Heart rate decreased [Unknown]
  - Dry skin [Unknown]
  - Hair texture abnormal [Unknown]
  - Feeling cold [Unknown]
  - Sleep disorder [Unknown]
  - Dysuria [Unknown]
  - Dyspnoea [Unknown]
  - Groin pain [Unknown]
  - Decreased appetite [Unknown]
  - Pain in extremity [Unknown]
  - Muscle spasms [Unknown]
